FAERS Safety Report 18888792 (Version 1)
Quarter: 2021Q1

REPORT INFORMATION
  Report Type: Report from Study
  Country: US (occurrence: US)
  Receive Date: 20210212
  Receipt Date: 20210212
  Transmission Date: 20210420
  Serious: Yes (Other)
  Sender: FDA-Public Use
  Company Number: US-ASTRAZENECA-2021A045184

PATIENT
  Sex: Male

DRUGS (1)
  1. TAGRISSO [Suspect]
     Active Substance: OSIMERTINIB
     Indication: LUNG CARCINOMA CELL TYPE UNSPECIFIED STAGE 0
     Route: 048
     Dates: start: 2018

REACTIONS (6)
  - Diarrhoea [Unknown]
  - Haemoglobin decreased [Unknown]
  - Red blood cell count abnormal [Unknown]
  - Intestinal mass [Unknown]
  - Arthritis [Unknown]
  - Platelet count abnormal [Unknown]
